FAERS Safety Report 7245428-X (Version None)
Quarter: 2011Q1

REPORT INFORMATION
  Report Type: 
  Country: None (occurrence: None)
  Receive Date: 20110126
  Receipt Date: 20110118
  Transmission Date: 20110831
  Serious: Yes (Hospitalization)
  Sender: FDA-Public Use
  Company Number: ES-B.I. PHARMACEUTICALS,INC./RIDGEFIELD-2011-ES-00018ES

PATIENT
  Age: 61 Year
  Sex: Male

DRUGS (3)
  1. PRADAXA [Suspect]
     Indication: THROMBOSIS PROPHYLAXIS
     Dosage: 220 MG
     Route: 048
  2. INSULINA [Concomitant]
     Indication: DIABETES MELLITUS
  3. ENANTYUM [Concomitant]
     Indication: PAIN
     Dosage: PRN

REACTIONS (1)
  - TRANSAMINASES INCREASED [None]
